FAERS Safety Report 9669892 (Version 1)
Quarter: 2013Q4

REPORT INFORMATION
  Report Type: Report from Study
  Country: KP (occurrence: KR)
  Receive Date: 20131105
  Receipt Date: 20131105
  Transmission Date: 20140711
  Serious: No
  Sender: FDA-Public Use
  Company Number: PHHY2013KR123109

PATIENT
  Age: 42 Year
  Sex: Female

DRUGS (11)
  1. AMN107 [Suspect]
     Indication: CHRONIC MYELOID LEUKAEMIA
     Dosage: 400 MG, PER DAY
     Route: 048
     Dates: start: 20121023
  2. DICAMAX-D [Concomitant]
     Indication: THYROID CANCER
     Route: 048
     Dates: start: 20121105
  3. XYZAL [Concomitant]
     Indication: PRURITUS
     Dosage: 5 MG, UNK
     Route: 048
     Dates: start: 20120928, end: 20130217
  4. CALTEO [Concomitant]
     Indication: THYROID CANCER
     Route: 048
     Dates: start: 20120518, end: 20121213
  5. CALCITRIOL [Concomitant]
     Indication: THYROID CANCER
     Dosage: 0.5 UG, UNK
     Route: 048
     Dates: start: 20120518
  6. MUCOSTA [Concomitant]
     Indication: PROPHYLAXIS
     Dosage: 200 MG, UNK
     Route: 048
     Dates: start: 20120518
  7. DURAGESIC [Concomitant]
     Indication: PAIN IN EXTREMITY
     Dosage: UNK
     Route: 062
     Dates: start: 20130123
  8. TARGIN [Concomitant]
     Indication: PROPHYLAXIS
     Route: 048
     Dates: start: 20120315
  9. ULTRACET [Concomitant]
     Route: 048
     Dates: start: 20111025
  10. SYNTHYROID [Concomitant]
     Indication: THYROID CANCER
     Dosage: 0.125 MG, UNK
     Route: 048
     Dates: start: 20120116
  11. AIRTAL [Concomitant]
     Indication: PROPHYLAXIS
     Dosage: 200 MG, UNK
     Route: 048
     Dates: start: 20111220, end: 20130419

REACTIONS (1)
  - Pain in extremity [Not Recovered/Not Resolved]
